FAERS Safety Report 15508150 (Version 1)
Quarter: 2018Q4

REPORT INFORMATION
  Report Type: Spontaneous
  Country: US (occurrence: US)
  Receive Date: 20181016
  Receipt Date: 20181016
  Transmission Date: 20190205
  Serious: Yes (Hospitalization)
  Sender: FDA-Public Use
  Company Number: US-FRESENIUS MEDICAL CARE RENAL THERAPIES GROUP-FMC-1810-001832

PATIENT
  Age: 71 Year
  Sex: Female

DRUGS (19)
  1. ALBUTEROL. [Concomitant]
     Active Substance: ALBUTEROL
  2. DOXYCYCLINE. [Concomitant]
     Active Substance: DOXYCYCLINE
  3. CARVEDILOL. [Concomitant]
     Active Substance: CARVEDILOL
  4. MUCINEX [Concomitant]
     Active Substance: GUAIFENESIN
  5. OMEPRAZOLE. [Concomitant]
     Active Substance: OMEPRAZOLE
  6. SODIUM CHLORIDE. [Concomitant]
     Active Substance: SODIUM CHLORIDE
  7. LEVOTHYROXINE. [Concomitant]
     Active Substance: LEVOTHYROXINE
  8. TRAMADOL. [Concomitant]
     Active Substance: TRAMADOL
  9. DOCUSATE SODIUM. [Concomitant]
     Active Substance: DOCUSATE SODIUM
  10. GLIMEPIRIDE. [Concomitant]
     Active Substance: GLIMEPIRIDE
  11. ACETAMINOPHEN. [Concomitant]
     Active Substance: ACETAMINOPHEN
  12. AMLODIPINE [Concomitant]
     Active Substance: AMLODIPINE BESYLATE
  13. CALCIUM ACETATE. [Concomitant]
     Active Substance: CALCIUM ACETATE
  14. LIDOCAINE. [Concomitant]
     Active Substance: LIDOCAINE
  15. DELFLEX [Suspect]
     Active Substance: CALCIUM CHLORIDE\DEXTROSE\MAGNESIUM CHLORIDE\SODIUM CHLORIDE\SODIUM LACTATE
     Indication: END STAGE RENAL DISEASE
     Route: 033
  16. GABAPENTIN. [Concomitant]
     Active Substance: GABAPENTIN
  17. SENNA LAXATIVE [Concomitant]
     Active Substance: SENNOSIDES
  18. ATORVASTATIN [Concomitant]
     Active Substance: ATORVASTATIN
  19. GENTAMICIN. [Concomitant]
     Active Substance: GENTAMICIN

REACTIONS (2)
  - Urinary retention [Recovered/Resolved]
  - Fluid overload [Recovered/Resolved]

NARRATIVE: CASE EVENT DATE: 20181003
